FAERS Safety Report 4783550-8 (Version None)
Quarter: 2005Q3

REPORT INFORMATION
  Report Type: 
  Country: None (occurrence: None)
  Receive Date: 20050914
  Receipt Date: 20040804
  Transmission Date: 20060218
  Serious: Yes (Hospitalization)
  Sender: FDA-Public Use
  Company Number: 163-20785-04080106

PATIENT
  Age: 49 Year
  Sex: Female
  Weight: 96.8 kg

DRUGS (12)
  1. THALOMID [Suspect]
     Indication: NON-SMALL CELL LUNG CANCER
     Dosage: DAILY, ORAL
     Route: 048
     Dates: start: 20040302, end: 20040710
  2. CARBOPLATIN [Suspect]
     Indication: NON-SMALL CELL LUNG CANCER
     Dosage: ON DAY 1 EVERY 21 DAYS X2, INTRAVENOUS
     Route: 042
     Dates: start: 20040302, end: 20040710
  3. PACLITAXEL [Suspect]
     Indication: NON-SMALL CELL LUNG CANCER
     Dosage: 225 MGM2, ON DAY 1 EVERY 21 DAYS X 2, INTRAVENOUS
     Route: 042
     Dates: start: 20040302, end: 20040601
  4. RADIATION THERAPY (UNKNOWN) [Suspect]
     Indication: NON-SMALL CELL LUNG CANCER
     Dosage: 60 GY, BEGINNING B/W DAYS 43-50 X 6 WEEKS,
     Dates: start: 20040401
  5. KLONOPIN (CLONAZEPAM) (UNKNOWN) [Concomitant]
  6. LIPITOR [Concomitant]
  7. METFORMIN (METFORMIN) (UNKNOWN) [Concomitant]
  8. NEURONTIN [Concomitant]
  9. NEXIUM [Concomitant]
  10. OXYCONTIN (OXYCODONE HYROCHLORIDE) (UNKNOWN) [Concomitant]
  11. OXYCODONE (OXYCODONE) (UNKNOWN) [Concomitant]
  12. PAXIL (PAROXETINE HYDROCHLORIDE) (UNKNOWN) [Concomitant]

REACTIONS (6)
  - ANAEMIA [None]
  - DIZZINESS [None]
  - DYSPNOEA [None]
  - HYPOKALAEMIA [None]
  - MUSCULAR WEAKNESS [None]
  - RADIATION PNEUMONITIS [None]
